FAERS Safety Report 8389523-0 (Version None)
Quarter: 2012Q2

REPORT INFORMATION
  Report Type: 
  Country: None (occurrence: None)
  Receive Date: 20120528
  Receipt Date: 20120507
  Transmission Date: 20120825
  Serious: No
  Sender: FDA-Public Use
  Company Number: US-BAYER-2012-047413

PATIENT
  Age: 51 Year
  Sex: Male
  Weight: 109 kg

DRUGS (11)
  1. NAPROXEN SODIUM [Suspect]
     Indication: ANALGESIC THERAPY
     Dosage: UNK
     Dates: start: 20120301
  2. LISINOPRIL [Concomitant]
  3. CITRACAL [Concomitant]
  4. CHLORTHALIDONE [Concomitant]
  5. SIMVASTATIN [Concomitant]
  6. AMLODIPINE BESYLATE [Concomitant]
  7. C-VITAMIN [Concomitant]
  8. B VITAMIN COMP [B5,B3,B6,B2,B1 HCL] [Concomitant]
  9. OMEPRAZOLE [Concomitant]
  10. MULTI-VITAMIN [Concomitant]
  11. GLUCOSAMINE [GLUCOSAMINE] [Concomitant]

REACTIONS (1)
  - NO ADVERSE EVENT [None]
